FAERS Safety Report 5023205-8 (Version None)
Quarter: 2006Q2

REPORT INFORMATION
  Report Type: 
  Country: None (occurrence: None)
  Receive Date: 20060428
  Receipt Date: 20060328
  Transmission Date: 20061013
  Serious: No
  Sender: FDA-Public Use
  Company Number: 012200

PATIENT
  Age: 46 Year
  Sex: Male

DRUGS (2)
  1. PRIALT [Suspect]
     Indication: PAIN
     Dosage: SEE IMAGE
     Route: 037
  2. HYDROMORPHONE HCL [Concomitant]

REACTIONS (4)
  - BLOOD CORTISOL DECREASED [None]
  - BLOOD TESTOSTERONE DECREASED [None]
  - DEPRESSION [None]
  - HALLUCINATION [None]
